FAERS Safety Report 18472457 (Version 1)
Quarter: 2020Q4

REPORT INFORMATION
  Report Type: Spontaneous
  Country: FR (occurrence: FR)
  Receive Date: 20201106
  Receipt Date: 20201106
  Transmission Date: 20210114
  Serious: Yes (Other)
  Sender: FDA-Public Use
  Company Number: FR-JNJFOC-20201105128

PATIENT
  Age: 12 Year
  Sex: Female

DRUGS (5)
  1. INFLIXIMAB, RECOMBINANT [Suspect]
     Active Substance: INFLIXIMAB
     Indication: CROHN^S DISEASE
     Dosage: UNK
     Route: 042
     Dates: start: 20200925
  2. GANCICLOVIR. [Suspect]
     Active Substance: GANCICLOVIR
     Dosage: 300 MG 1/1 DAY(S) (150 MG (2 PER DAY))
     Route: 041
     Dates: start: 20201009
  3. GANCICLOVIR. [Suspect]
     Active Substance: GANCICLOVIR
     Indication: CYTOMEGALOVIRUS GASTROINTESTINAL INFECTION
     Dosage: 400 MG 1/1 DAY(S) (200 MG, (2 PER DAY))
     Route: 041
     Dates: start: 20200924, end: 20201001
  4. GANCICLOVIR. [Suspect]
     Active Substance: GANCICLOVIR
     Dosage: 400 MG 1/1 DAY(S) (200 MG (2 PER DAY))
     Route: 041
     Dates: start: 20201011
  5. GANCICLOVIR. [Suspect]
     Active Substance: GANCICLOVIR
     Dosage: 200 MG 1/1 DAY(S) (100 MG (2 PER DAY))
     Route: 041
     Dates: start: 20201002

REACTIONS (1)
  - Thrombocytopenia [Recovered/Resolved]

NARRATIVE: CASE EVENT DATE: 20200929
